FAERS Safety Report 8421728-2 (Version None)
Quarter: 2012Q2

REPORT INFORMATION
  Report Type: 
  Country: None (occurrence: None)
  Receive Date: 20120323
  Receipt Date: 20111223
  Transmission Date: 20120825
  Serious: Yes (Other)
  Sender: FDA-Public Use
  Company Number: 163-21880-11122350

PATIENT
  Age: 74 Year
  Sex: Female
  Weight: 88.4514 kg

DRUGS (5)
  1. ATENOLOL [Concomitant]
  2. RANITIDINE HYDROCHLORIDE [Concomitant]
  3. ASPIRIN [Concomitant]
  4. REVLIMID [Suspect]
     Indication: MYELODYSPLASTIC SYNDROME
     Dosage: 10 MG, QDAY X 21 DAYS, 7 DAYS OFF, PO
     Route: 048
     Dates: start: 20111209, end: 20111211
  5. LISINOPRIL [Concomitant]

REACTIONS (3)
  - HYPERSENSITIVITY [None]
  - RASH PRURITIC [None]
  - SWELLING FACE [None]
